FAERS Safety Report 7194078-2 (Version None)
Quarter: 2010Q4

REPORT INFORMATION
  Report Type: 
  Country: None (occurrence: None)
  Receive Date: 20101223
  Receipt Date: 20100930
  Transmission Date: 20110411
  Serious: No
  Sender: FDA-Public Use
  Company Number: US-AMGEN-TCS436481

PATIENT

DRUGS (13)
  1. ENBREL [Suspect]
     Indication: RHEUMATOID ARTHRITIS
     Dosage: 50 MG, QWK
     Route: 058
     Dates: start: 20100415
  2. VARENICLINE TARTRATE [Concomitant]
     Dosage: UNK UNK, QD
     Dates: start: 20100316
  3. RISEDRONATE SODIUM [Concomitant]
     Dosage: UNK UNK, QMO
     Dates: start: 20100316
  4. EXCEDRIN (MIGRAINE) [Concomitant]
     Dosage: UNK UNK, PRN
     Dates: start: 20100316
  5. LANSOPRAZOLE [Concomitant]
     Dosage: 15 MG, PRN
     Dates: start: 20100316
  6. FOLIC ACID [Concomitant]
     Dosage: UNK UNK, QD
     Dates: start: 20100316
  7. HYDROCODONE BITARTRATE [Concomitant]
     Dosage: UNK UNK, UNK
     Dates: start: 20100316
  8. TUMS [Concomitant]
     Dosage: UNK UNK, UNK
     Dates: start: 20100916
  9. POTASSIUM [Concomitant]
     Dosage: UNK UNK, UNK
     Dates: start: 20100916
  10. DICLOFENAC [Concomitant]
     Dosage: 50 MG, BID
     Dates: start: 20100916
  11. METHOTREXATE [Concomitant]
     Dosage: 2.5 MG, QD
     Dates: start: 20100316
  12. HYDROXYCHLOROQUINE [Concomitant]
     Dosage: 200 MG, BID
     Dates: start: 20100316
  13. LEFLUNOMIDE [Concomitant]
     Dosage: UNK UNK, UNK
     Dates: start: 20100916

REACTIONS (3)
  - ARTHRALGIA [None]
  - MUSCULOSKELETAL STIFFNESS [None]
  - RHEUMATOID ARTHRITIS [None]
